FAERS Safety Report 4885828-6 (Version None)
Quarter: 2006Q1

REPORT INFORMATION
  Report Type: 
  Country: None (occurrence: None)
  Receive Date: 20060120
  Receipt Date: 20060116
  Transmission Date: 20060701
  Serious: Yes (Other)
  Sender: FDA-Public Use
  Company Number: PHEH2006US01010

PATIENT
  Age: 51 Year
  Sex: Female

DRUGS (4)
  1. CLOZARIL [Suspect]
     Indication: PSYCHOTIC DISORDER
     Dosage: 350 MG, QD
     Route: 048
     Dates: start: 20030101, end: 20060101
  2. RISPERDAL [Concomitant]
  3. LAMICTAL [Concomitant]
  4. KEPPRA [Concomitant]

REACTIONS (2)
  - BREAST CANCER IN SITU [None]
  - LYMPHADENOPATHY [None]
